FAERS Safety Report 23341560 (Version 1)
Quarter: 2023Q4

REPORT INFORMATION
  Report Type: Spontaneous
  Country: US (occurrence: None)
  Receive Date: 20231226
  Receipt Date: 20231226
  Transmission Date: 20240110
  Serious: Yes (Hospitalization)
  Sender: FDA-Public Use
  Company Number: None

PATIENT
  Age: 72 Year
  Sex: Male

DRUGS (1)
  1. APIXABAN [Suspect]
     Active Substance: APIXABAN
     Dates: start: 20220927

REACTIONS (8)
  - Dizziness [None]
  - Nausea [None]
  - Constipation [None]
  - Balance disorder [None]
  - Decreased appetite [None]
  - Melaena [None]
  - Anaemia [None]
  - Polyp [None]

NARRATIVE: CASE EVENT DATE: 20231125
